FAERS Safety Report 10491515 (Version 1)
Quarter: 2014Q4

REPORT INFORMATION
  Report Type: Spontaneous
  Country: US (occurrence: US)
  Receive Date: 20141002
  Receipt Date: 20141002
  Transmission Date: 20150528
  Serious: No
  Sender: FDA-Public Use
  Company Number: US-GLAXOSMITHKLINE-A1054516A

PATIENT
  Sex: Female

DRUGS (12)
  1. NABUMETONE. [Concomitant]
     Active Substance: NABUMETONE
  2. IMDUR [Concomitant]
     Active Substance: ISOSORBIDE MONONITRATE
  3. POTASSIUM [Concomitant]
     Active Substance: POTASSIUM
  4. ATORVASTATIN [Concomitant]
     Active Substance: ATORVASTATIN
  5. FUROSEMIDE. [Concomitant]
     Active Substance: FUROSEMIDE
  6. VITAMIN C [Concomitant]
     Active Substance: ASCORBIC ACID
  7. ADVAIR HFA [Suspect]
     Active Substance: FLUTICASONE PROPIONATE\SALMETEROL XINAFOATE
     Indication: ASTHMA
     Dosage: 1PUFF TWICE PER DAY
     Route: 055
  8. FINACEA [Concomitant]
     Active Substance: AZELAIC ACID
  9. LISINOPRIL. [Concomitant]
     Active Substance: LISINOPRIL
  10. ZETIA [Concomitant]
     Active Substance: EZETIMIBE
  11. MULTIVITAMIN [Concomitant]
     Active Substance: VITAMINS
  12. ATENOLOL/CHLORTHALIDONE [Concomitant]
     Active Substance: ATENOLOL\CHLORTHALIDONE

REACTIONS (4)
  - Dyspnoea [Unknown]
  - Fatigue [Unknown]
  - Feeling abnormal [Unknown]
  - Chest discomfort [Unknown]
